FAERS Safety Report 5478019-1 (Version None)
Quarter: 2007Q4

REPORT INFORMATION
  Report Type: 
  Country: None (occurrence: None)
  Receive Date: 20071005
  Receipt Date: 20070928
  Transmission Date: 20080405
  Serious: Yes (Hospitalization)
  Sender: FDA-Public Use
  Company Number: US-JNJFOC-20070603816

PATIENT
  Sex: Female
  Weight: 65.77 kg

DRUGS (2)
  1. ORTHO EVRA [Suspect]
     Indication: MENSTRUATION IRREGULAR
     Route: 062
  2. LEXAPRO [Concomitant]

REACTIONS (2)
  - MIGRAINE [None]
  - PARAESTHESIA [None]
